FAERS Safety Report 12172322 (Version 1)
Quarter: 2016Q1

REPORT INFORMATION
  Report Type: Spontaneous
  Country: US (occurrence: US)
  Receive Date: 20160311
  Receipt Date: 20160311
  Transmission Date: 20160526
  Serious: Yes (Hospitalization)
  Sender: FDA-Public Use
  Company Number: US-BAYER-2016-044997

PATIENT
  Age: 61 Year
  Sex: Female

DRUGS (10)
  1. HYDROCODONE [Concomitant]
     Active Substance: HYDROCODONE
  2. TRAMADOL. [Concomitant]
     Active Substance: TRAMADOL
  3. LISIPRIL [Concomitant]
  4. SIMVASTATIN. [Concomitant]
     Active Substance: SIMVASTATIN
  5. GABAPENTIN. [Concomitant]
     Active Substance: GABAPENTIN
  6. CITALOPRAM [Concomitant]
     Active Substance: CITALOPRAM HYDROBROMIDE
  7. BACTROPIN [Concomitant]
  8. CLIMARA [Suspect]
     Active Substance: ESTRADIOL
     Dosage: 0.1 MG/24HR, OW
     Route: 062
     Dates: start: 2012
  9. ALPAZ [ALPRAZOLAM] [Concomitant]
  10. ERGOCALCIFEROL. [Concomitant]
     Active Substance: ERGOCALCIFEROL

REACTIONS (6)
  - Mood swings [Recovered/Resolved]
  - Intentional product use issue [None]
  - Hot flush [Recovered/Resolved]
  - Intentional product use issue [None]
  - Respiratory tract infection viral [Recovered/Resolved]
  - Product adhesion issue [Recovered/Resolved]

NARRATIVE: CASE EVENT DATE: 201501
